FAERS Safety Report 4309305-6 (Version None)
Quarter: 2004Q1

REPORT INFORMATION
  Report Type: 
  Country: None (occurrence: None)
  Receive Date: 20040227
  Receipt Date: 20040218
  Transmission Date: 20041129
  Serious: Yes (Other)
  Sender: FDA-Public Use
  Company Number: PTWYE584916FEB04

PATIENT
  Age: 42 Year
  Sex: Female

DRUGS (1)
  1. PREMARIN [Suspect]
     Indication: HORMONE REPLACEMENT THERAPY
     Dosage: 0.625 MG 1X PER 1 DAY ORAL
     Route: 048
     Dates: start: 19970326, end: 19970331

REACTIONS (2)
  - ECZEMA [None]
  - PRURITUS [None]
